FAERS Safety Report 20166128 (Version 4)
Quarter: 2022Q1

REPORT INFORMATION
  Report Type: Spontaneous
  Country: AU (occurrence: AU)
  Receive Date: 20211209
  Receipt Date: 20220309
  Transmission Date: 20220424
  Serious: Yes (Hospitalization, Other)
  Sender: FDA-Public Use
  Company Number: AU-MYLANLABS-2021M1091264

PATIENT
  Age: 53 Year
  Sex: Male

DRUGS (4)
  1. CLOZARIL [Suspect]
     Active Substance: CLOZAPINE
     Indication: Schizophrenia
     Dosage: 450 MILLIGRAM
     Route: 048
     Dates: start: 20000915, end: 2021
  2. VAXZEVRIA [Concomitant]
     Active Substance: AZD-1222
     Dosage: 1ST DOSE
     Dates: start: 20210505
  3. VAXZEVRIA [Concomitant]
     Active Substance: AZD-1222
     Dosage: 2ND DOSE
     Dates: start: 20210714
  4. INFLUENZA VIRUS VACCINE [Concomitant]
     Active Substance: INFLUENZA VIRUS VACCINE
     Dosage: UNK
     Dates: start: 20210606

REACTIONS (4)
  - Mental impairment [Recovering/Resolving]
  - Cardiac failure [Unknown]
  - Cardiomyopathy [Unknown]
  - Electrocardiogram QT prolonged [Recovering/Resolving]

NARRATIVE: CASE EVENT DATE: 20211101
